FAERS Safety Report 25141899 (Version 1)
Quarter: 2025Q1

REPORT INFORMATION
  Report Type: Spontaneous
  Country: US (occurrence: US)
  Receive Date: 20250331
  Receipt Date: 20250331
  Transmission Date: 20250409
  Serious: No
  Sender: EVOLUS, INC.
  Company Number: US-Evolus, Inc.-2024EV000319

PATIENT

DRUGS (2)
  1. JEUVEAU [Suspect]
     Active Substance: PRABOTULINUMTOXINA-XVFS
     Indication: Product used for unknown indication
     Dates: start: 20240328, end: 20240328
  2. JEUVEAU [Suspect]
     Active Substance: PRABOTULINUMTOXINA-XVFS
     Dates: start: 20240711, end: 20240711

REACTIONS (1)
  - Injection site swelling [Unknown]

NARRATIVE: CASE EVENT DATE: 20240701
